FAERS Safety Report 23397107 (Version 1)
Quarter: 2024Q1

REPORT INFORMATION
  Report Type: Spontaneous
  Country: US (occurrence: None)
  Receive Date: 20240112
  Receipt Date: 20240112
  Transmission Date: 20240409
  Serious: Yes (Hospitalization)
  Sender: FDA-Public Use
  Company Number: None

PATIENT
  Sex: Female

DRUGS (9)
  1. KESIMPTA [Suspect]
     Active Substance: OFATUMUMAB
     Dosage: OTHER QUANTITY : 20MG/0.4ML;?FREQUENCY : MONTHLY;?
     Route: 058
  2. BACLOFEN [Concomitant]
     Active Substance: BACLOFEN
  3. CLONAZEPAM [Concomitant]
     Active Substance: CLONAZEPAM
  4. DULOXETINE [Concomitant]
     Active Substance: DULOXETINE
  5. ESTRADIOL [Concomitant]
     Active Substance: ESTRADIOL
  6. LIPITOR [Concomitant]
     Active Substance: ATORVASTATIN CALCIUM
  7. LOSARTAN POTASSIUM [Concomitant]
     Active Substance: LOSARTAN POTASSIUM
  8. OXYBUTYNIN [Concomitant]
     Active Substance: OXYBUTYNIN\OXYBUTYNIN CHLORIDE
  9. PREGABALIN [Concomitant]
     Active Substance: PREGABALIN

REACTIONS (3)
  - COVID-19 [None]
  - Therapy interrupted [None]
  - Upper respiratory tract infection [None]
